FAERS Safety Report 18710996 (Version 1)
Quarter: 2021Q1

REPORT INFORMATION
  Report Type: Other
  Country: US (occurrence: US)
  Receive Date: 20210107
  Receipt Date: 20210107
  Transmission Date: 20210419
  Serious: Yes (Hospitalization)
  Sender: FDA-Public Use
  Company Number: US-B.BRAUN MEDICAL INC.-2104049

PATIENT
  Age: 54 Year
  Sex: Male

DRUGS (1)
  1. THEOPHYLLINE IN 5% DEXTROSE INJECTIONS USP 0264?9554?10 0264?9558?10 ( [Suspect]
     Active Substance: DEXTROSE MONOHYDRATE\THEOPHYLLINE\THEOPHYLLINE ANHYDROUS

REACTIONS (1)
  - Chest discomfort [Recovered/Resolved]
